FAERS Safety Report 20639198 (Version 3)
Quarter: 2022Q2

REPORT INFORMATION
  Report Type: Report from Study
  Country: FR (occurrence: FR)
  Receive Date: 20220326
  Receipt Date: 20220418
  Transmission Date: 20220721
  Serious: Yes (Other)
  Sender: FDA-Public Use
  Company Number: FR-TAKEDA-2022TUS017969

PATIENT
  Age: 69 Year
  Sex: Female

DRUGS (8)
  1. TEDUGLUTIDE [Suspect]
     Active Substance: TEDUGLUTIDE
     Indication: Short-bowel syndrome
     Dosage: 3.59 MILLIGRAM, QD
     Route: 042
     Dates: start: 20190430, end: 20210722
  2. TEDUGLUTIDE [Suspect]
     Active Substance: TEDUGLUTIDE
     Indication: Short-bowel syndrome
     Dosage: 3.59 MILLIGRAM, QD
     Route: 042
     Dates: start: 20190430, end: 20210722
  3. TEDUGLUTIDE [Suspect]
     Active Substance: TEDUGLUTIDE
     Indication: Short-bowel syndrome
     Dosage: 3.59 MILLIGRAM, QD
     Route: 042
     Dates: start: 20190430, end: 20210722
  4. TEDUGLUTIDE [Suspect]
     Active Substance: TEDUGLUTIDE
     Indication: Short-bowel syndrome
     Dosage: 3.59 MILLIGRAM, QD
     Route: 042
     Dates: start: 20190430, end: 20210722
  5. CARBIMAZOLE [Concomitant]
     Active Substance: CARBIMAZOLE
     Indication: Hyperthyroidism
     Dosage: 30 MILLIGRAM, QD
     Route: 048
     Dates: start: 20211104
  6. CARBIMAZOLE [Concomitant]
     Active Substance: CARBIMAZOLE
     Dosage: 20 MILLIGRAM, QD
     Route: 048
     Dates: start: 20210723, end: 20211103
  7. VITAMIN D [Concomitant]
     Active Substance: VITAMIN D NOS
     Indication: Vitamin D deficiency
     Dosage: 80000 INTERNATIONAL UNIT, MONTHLY
     Route: 048
     Dates: start: 20211026
  8. PHLOROGLUCINOL [Concomitant]
     Active Substance: PHLOROGLUCINOL
     Indication: Abdominal pain
     Dosage: UNK
     Route: 048
     Dates: start: 20211026

REACTIONS (1)
  - Basedow^s disease [Not Recovered/Not Resolved]

NARRATIVE: CASE EVENT DATE: 20210701
